FAERS Safety Report 10984154 (Version 2)
Quarter: 2016Q1

REPORT INFORMATION
  Report Type: Spontaneous
  Country: JP (occurrence: JP)
  Receive Date: 20150403
  Receipt Date: 20160311
  Transmission Date: 20160525
  Serious: Yes (Other)
  Sender: FDA-Public Use
  Company Number: JP-PFIZER INC-2015114192

PATIENT
  Age: 60 Year
  Sex: Male

DRUGS (1)
  1. HALCION [Suspect]
     Active Substance: TRIAZOLAM
     Dosage: 0.25 MG, DAILY
     Route: 048

REACTIONS (2)
  - Aggression [Unknown]
  - Delirium [Unknown]

NARRATIVE: CASE EVENT DATE: 20150301
